FAERS Safety Report 19991034 (Version 1)
Quarter: 2021Q4

REPORT INFORMATION
  Report Type: Spontaneous
  Country: CH (occurrence: CH)
  Receive Date: 20211025
  Receipt Date: 20211025
  Transmission Date: 20220303
  Serious: Yes (Other)
  Sender: FDA-Public Use
  Company Number: CH-HQ SPECIALTY-CH-2021INT000184

PATIENT

DRUGS (4)
  1. CISPLATIN [Suspect]
     Active Substance: CISPLATIN
     Indication: Cholangiocarcinoma
     Dosage: 25 MG/M2, DAYS 1 AND 8, REPEATED ON DAY 22, FOR A TOTAL OF 4 CYCLES
     Route: 042
  2. GEMCITABINE [Suspect]
     Active Substance: GEMCITABINE
     Indication: Cholangiocarcinoma
     Dosage: 1000 MG/M2, (DOSE LEVEL 3) DAYS 1 AND 8 REPEATED ON DAY 22, FOR A TOTAL OF 4 CYCLES
     Route: 042
  3. FLOXURIDINE [Suspect]
     Active Substance: FLOXURIDINE
     Indication: Cholangiocarcinoma
     Dosage: 0.2 MG/KG/DAY CONTINUOUSLY I.A. FOR 14 DAYS, DAYS 1, 29, 57
     Route: 065
  4. DEXAMETHASONE SODIUM PHOSPHATE [Concomitant]
     Active Substance: DEXAMETHASONE SODIUM PHOSPHATE
     Indication: Prophylaxis
     Dosage: 20 MG, REPEATED AT DAY 29, FOR A TOTAL OF 3 CYCLES

REACTIONS (1)
  - Biliary tract infection [Unknown]
